FAERS Safety Report 10906654 (Version 3)
Quarter: 2015Q2

REPORT INFORMATION
  Report Type: Report from Study
  Country: US (occurrence: US)
  Receive Date: 20150312
  Receipt Date: 20150521
  Transmission Date: 20150821
  Serious: Yes (Hospitalization)
  Sender: FDA-Public Use
  Company Number: US-BIOGENIDEC-2015BI030783

PATIENT
  Sex: Female

DRUGS (1)
  1. TYSABRI [Suspect]
     Active Substance: NATALIZUMAB
     Indication: MULTIPLE SCLEROSIS
     Route: 042
     Dates: start: 20140723, end: 20140723

REACTIONS (6)
  - Paralysis [Unknown]
  - Rash generalised [Recovered/Resolved]
  - Diplopia [Recovered/Resolved]
  - Influenza [Recovered/Resolved]
  - Blindness unilateral [Recovered/Resolved]
  - Seizure [Recovered/Resolved]
